FAERS Safety Report 7907436-2 (Version None)
Quarter: 2011Q4

REPORT INFORMATION
  Report Type: 
  Country: None (occurrence: None)
  Receive Date: 20111110
  Receipt Date: 20111101
  Transmission Date: 20120403
  Serious: Yes (Hospitalization, Other)
  Sender: FDA-Public Use
  Company Number: US-BAYER-200714645NA

PATIENT
  Age: 54 Year
  Sex: Female
  Weight: 52.273 kg

DRUGS (5)
  1. AVELOX [Suspect]
     Indication: INFLUENZA
     Dosage: 400 MG, BID
     Route: 048
     Dates: start: 20070621, end: 20070701
  2. DOXYCYCLINE [Concomitant]
     Indication: PSITTACOSIS
  3. CLONAZEPAM [Concomitant]
  4. DOXYCYCLINE [Concomitant]
     Indication: CHLAMYDIAL INFECTION
  5. AVELOX [Suspect]
     Indication: PNEUMONIA
     Route: 048
     Dates: start: 20070904, end: 20070911

REACTIONS (22)
  - ABNORMAL BEHAVIOUR [None]
  - PHOTOSENSITIVITY REACTION [None]
  - NERVOUS SYSTEM DISORDER [None]
  - DISTURBANCE IN ATTENTION [None]
  - AFFECT LABILITY [None]
  - TOXICITY TO VARIOUS AGENTS [None]
  - SPEECH DISORDER [None]
  - INJURY CORNEAL [None]
  - BLINDNESS [None]
  - DISSOCIATION [None]
  - BRAIN INJURY [None]
  - HYPOAESTHESIA [None]
  - TENDON PAIN [None]
  - MEMORY IMPAIRMENT [None]
  - PRESYNCOPE [None]
  - DEAFNESS [None]
  - PHOTOPHOBIA [None]
  - CENTRAL NERVOUS SYSTEM LESION [None]
  - PERSONALITY DISORDER [None]
  - BLOOD PRESSURE INCREASED [None]
  - PSYCHOTIC DISORDER [None]
  - MOTOR DYSFUNCTION [None]
